FAERS Safety Report 7794651-4 (Version None)
Quarter: 2011Q3

REPORT INFORMATION
  Report Type: 
  Country: None (occurrence: None)
  Receive Date: 20110930
  Receipt Date: 20110921
  Transmission Date: 20111222
  Serious: Yes (Life-Threatening, Hospitalization, Other)
  Sender: FDA-Public Use
  Company Number: FK201101961

PATIENT
  Age: 80 Year
  Sex: Male

DRUGS (5)
  1. FENTANYL [Suspect]
     Indication: ANALGESIC THERAPY
     Dosage: 400 UG, EPIDURAL
     Route: 008
  2. ROPIVACAINE HYDROCHLORIDE [Suspect]
     Indication: ANALGESIC THERAPY
     Dosage: 400 UG, EPIDURAL
     Route: 008
  3. ADRENALIN IN OIL INJ [Suspect]
     Indication: ANALGESIC THERAPY
     Dosage: 400 UG, EPIDURAL
     Route: 008
  4. SAXAGLIPTIN (MANUFACTURER UNKNOWN) [Suspect]
     Indication: TYPE 2 DIABETES MELLITUS
     Dosage: DOSING RESUMED: 11JUL2011
     Dates: start: 20110217, end: 20110629
  5. PLACEBO [Suspect]
     Indication: TYPE 2 DIABETES MELLITUS

REACTIONS (3)
  - SICK SINUS SYNDROME [None]
  - THROMBOCYTOPENIA [None]
  - HYPOTENSION [None]
